FAERS Safety Report 8154658-4 (Version None)
Quarter: 2012Q1

REPORT INFORMATION
  Report Type: 
  Country: None (occurrence: None)
  Receive Date: 20120221
  Receipt Date: 20120214
  Transmission Date: 20120608
  Serious: Yes (Hospitalization, Other)
  Sender: FDA-Public Use
  Company Number: BR-ABBOTT-10P-020-0673654-00

PATIENT
  Sex: Female
  Weight: 78 kg

DRUGS (6)
  1. HUMIRA [Suspect]
     Indication: PSORIASIS
  2. CRESTOR [Concomitant]
     Indication: BLOOD CHOLESTEROL INCREASED
     Route: 048
     Dates: start: 20100301
  3. SYSTEN CONTI [Concomitant]
     Indication: PAIN
  4. HUMIRA [Suspect]
     Indication: PSORIATIC ARTHROPATHY
     Dosage: 1 IN 14 DAYS, NO INDUCTION DOSE
     Route: 058
     Dates: start: 20100622, end: 20110915
  5. LOXONIN [Concomitant]
     Indication: MUSCULOSKELETAL PAIN
     Dosage: 1 OR 2 A DAY, IF NECESSARY
     Route: 048
  6. LOXONIN [Concomitant]
     Indication: ARTHRALGIA

REACTIONS (10)
  - MUSCULOSKELETAL PAIN [None]
  - TENDON RUPTURE [None]
  - PSORIASIS [None]
  - DRUG INEFFECTIVE [None]
  - ABDOMINAL PAIN [None]
  - OEDEMA PERIPHERAL [None]
  - REBOUND EFFECT [None]
  - ARTHRITIS [None]
  - APPENDICITIS [None]
  - ARTHRALGIA [None]
